FAERS Safety Report 20078614 (Version 2)
Quarter: 2021Q4

REPORT INFORMATION
  Report Type: Spontaneous
  Country: CA (occurrence: None)
  Receive Date: 20211117
  Receipt Date: 20211216
  Transmission Date: 20220304
  Serious: Yes (Other)
  Sender: FDA-Public Use
  Company Number: CA-ROCHE-2952911

PATIENT
  Age: 36 Year
  Sex: Female

DRUGS (6)
  1. TRASTUZUMAB [Suspect]
     Active Substance: TRASTUZUMAB
     Indication: Breast cancer
     Route: 042
  2. KADCYLA [Suspect]
     Active Substance: ADO-TRASTUZUMAB EMTANSINE
     Indication: Breast cancer
     Route: 042
  3. CYCLOPHOSPHAMIDE [Concomitant]
     Active Substance: CYCLOPHOSPHAMIDE
  4. DOXORUBICIN [Concomitant]
     Active Substance: DOXORUBICIN
  5. TAMOXIFEN [Concomitant]
     Active Substance: TAMOXIFEN
  6. TAXOL [Concomitant]
     Active Substance: PACLITAXEL

REACTIONS (8)
  - Alanine aminotransferase increased [Unknown]
  - Blood alkaline phosphatase increased [Unknown]
  - Bone pain [Unknown]
  - Drug intolerance [Unknown]
  - Fatigue [Unknown]
  - Heavy menstrual bleeding [Unknown]
  - Iron deficiency anaemia [Unknown]
  - Neuropathy peripheral [Unknown]
